FAERS Safety Report 24201695 (Version 1)
Quarter: 2024Q3

REPORT INFORMATION
  Report Type: Spontaneous
  Country: CN (occurrence: CN)
  Receive Date: 20240812
  Receipt Date: 20240812
  Transmission Date: 20241017
  Serious: Yes (Hospitalization, Other)
  Sender: BAXTER
  Company Number: None

PATIENT
  Age: 77 Year
  Sex: Male
  Weight: 50 kg

DRUGS (13)
  1. CYCLOPHOSPHAMIDE [Suspect]
     Active Substance: CYCLOPHOSPHAMIDE
     Indication: Diffuse large B-cell lymphoma
     Dosage: 0.7 G, ONE TIME IN ONE DAY, DILUTED WITH 500 ML OF 0.9% SODIUM CHLORIDE, D1, FIRST COURSE OF R-MINIC
     Route: 041
     Dates: start: 20240714, end: 20240714
  2. RITUXIMAB [Suspect]
     Active Substance: RITUXIMAB
     Indication: Diffuse large B-cell lymphoma
     Dosage: 500 MG, ONE TIME IN ONE DAY, DILUTED WITH 500 ML OF 0.9% SODIUM CHLORIDE, D0, FIRST COURSE OF R-MINI
     Route: 041
     Dates: start: 20240713, end: 20240713
  3. RITUXIMAB [Suspect]
     Active Substance: RITUXIMAB
     Dosage: 500 MG, ONE TIME IN ONE DAY, DILUTED WITH 500 ML OF 0.9% SODIUM CHLORIDE, D0, FIRST COURSE OF R-MINI
     Route: 041
     Dates: start: 20240713, end: 20240713
  4. RITUXIMAB [Suspect]
     Active Substance: RITUXIMAB
     Dosage: 100 MG, ONE TIME IN ONE DAY, DILUTED WITH 100 ML OF 0.9% SODIUM CHLORIDE, D0, FIRST COURSE OF R-MINI
     Route: 041
     Dates: start: 20240713, end: 20240713
  5. RITUXIMAB [Suspect]
     Active Substance: RITUXIMAB
     Dosage: 100 MG, ONE TIME IN ONE DAY, DILUTED WITH 100 ML OF 0.9% SODIUM CHLORIDE, D0, FIRST COURSE OF R-MINI
     Route: 041
     Dates: start: 20240713, end: 20240713
  6. PIRARUBICIN HYDROCHLORIDE [Suspect]
     Active Substance: PIRARUBICIN HYDROCHLORIDE
     Indication: Diffuse large B-cell lymphoma
     Dosage: 45 MG, ONE TIME IN ONE DAY, DILUTED WITH 250 ML OF 5% GLUCOSE, D1, FIRST COURSE OF R-MINICHOP CHEMOT
     Route: 041
     Dates: start: 20240714, end: 20240714
  7. VINCRISTINE SULFATE [Suspect]
     Active Substance: VINCRISTINE SULFATE
     Indication: Diffuse large B-cell lymphoma
     Dosage: 2 MG, ONE TIME IN ONE DAY, DILUTED WITH 20 ML OF 0.9% SODIUM CHLORIDE, D1, FIRST COURSE OF R-MINICHO
     Route: 042
     Dates: start: 20240714, end: 20240714
  8. DELTASONE [Suspect]
     Active Substance: PREDNISONE
     Indication: Diffuse large B-cell lymphoma
     Dosage: 80 MG, ONE TIME IN ONE DAY, D1-3, FIRST COURSE OF R-MINICHOP CHEMOTHERAPY, ANTI-TUMOR
     Route: 048
     Dates: start: 20240714, end: 20240716
  9. SODIUM CHLORIDE [Suspect]
     Active Substance: SODIUM CHLORIDE
     Indication: Medication dilution
     Dosage: 100 ML, ONE TIME IN ONE DAY, USED TO DILUTE 100 MG OF RITUXIMAB, D0, FIRST COURSE OF R-MINICHOP CHEM
     Route: 041
     Dates: start: 20240713, end: 20240713
  10. SODIUM CHLORIDE [Suspect]
     Active Substance: SODIUM CHLORIDE
     Dosage: 500 ML, ONE TIME IN ONE DAY, USED TO DILUTE 500 MG OF RITUXIMAB, D0, FIRST COURSE OF R-MINICHOP CHEM
     Route: 041
     Dates: start: 20240713, end: 20240713
  11. SODIUM CHLORIDE [Suspect]
     Active Substance: SODIUM CHLORIDE
     Dosage: 500 ML, ONE TIME IN ONE DAY, USED TO DILUTE 0.7 G OF CYCLOPHOSPHAMIDE, D1, FIRST COURSE OF R-MINICHO
     Route: 041
     Dates: start: 20240714, end: 20240714
  12. SODIUM CHLORIDE [Suspect]
     Active Substance: SODIUM CHLORIDE
     Dosage: 20 ML, ONE TIME IN ONE DAY, USED TO DILUTE 2 MG OF VINCRISTINE SULFATE, D1, FIRST COURSE OF R-MINICH
     Route: 042
     Dates: start: 20240714, end: 20240714
  13. DEXTROSE [Suspect]
     Active Substance: DEXTROSE\DEXTROSE MONOHYDRATE
     Indication: Medication dilution
     Dosage: 250 ML, ONE TIME IN ONE DAY, USED TO DILUTE 45 MG OF PIRARUBICIN HYDROCHLORIDE, D1, FIRST COURSE OF
     Route: 041
     Dates: start: 20240714, end: 20240714

REACTIONS (4)
  - Condition aggravated [Unknown]
  - Diffuse large B-cell lymphoma [Unknown]
  - Myelosuppression [Recovered/Resolved]
  - White blood cell count decreased [Recovered/Resolved]

NARRATIVE: CASE EVENT DATE: 20240722
